FAERS Safety Report 10051184 (Version 1)
Quarter: 2014Q2

REPORT INFORMATION
  Report Type: Spontaneous
  Country: IT (occurrence: IT)
  Receive Date: 20140401
  Receipt Date: 20140401
  Transmission Date: 20141212
  Serious: Yes (Hospitalization)
  Sender: FDA-Public Use
  Company Number: PHHY2014IT036418

PATIENT
  Age: 81 Year
  Sex: Female

DRUGS (15)
  1. LYRICA [Concomitant]
  2. PERIPLUM [Concomitant]
  3. IVABRADINE [Concomitant]
  4. ATORVASTATIN [Concomitant]
  5. METFORMIN [Suspect]
     Indication: DIABETES MELLITUS
     Dosage: 500 MG, QD
     Route: 048
     Dates: start: 20090314, end: 20140314
  6. GLICLAZIDE [Suspect]
     Indication: DIABETES MELLITUS
     Dosage: 1 DF, QD
     Route: 048
     Dates: start: 20090314, end: 20140314
  7. LANTUS [Suspect]
     Indication: DIABETES MELLITUS
     Dosage: 30 DF, QD
     Route: 058
     Dates: start: 20110314, end: 20140314
  8. EUTIROX [Concomitant]
  9. PANTORC [Concomitant]
  10. APROVEL [Concomitant]
  11. ESIDREX [Concomitant]
  12. LASIX [Concomitant]
  13. PLAVIX [Concomitant]
  14. MINITRAN [Concomitant]
  15. ZYLORIC [Concomitant]

REACTIONS (2)
  - Hypoglycaemia [Recovered/Resolved]
  - Syncope [Recovered/Resolved]
